FAERS Safety Report 7732746-1 (Version None)
Quarter: 2011Q3

REPORT INFORMATION
  Report Type: 
  Country: None (occurrence: None)
  Receive Date: 20110829
  Receipt Date: 20110823
  Transmission Date: 20111222
  Serious: Yes (Other)
  Sender: FDA-Public Use
  Company Number: 2011027925

PATIENT
  Age: 59 Year
  Sex: Female
  Weight: 58.9676 kg

DRUGS (22)
  1. HIZENTRA [Suspect]
  2. SINGULAIR [Concomitant]
  3. DIOVAN [Concomitant]
  4. ASTEPRO [Concomitant]
  5. VERAMYST (FLUTICASONE) [Concomitant]
  6. MUCINEX [Concomitant]
  7. HIZENTRA [Suspect]
  8. SUDAFED 12 HOUR [Concomitant]
  9. HIZENTRA [Suspect]
     Indication: HYPOGAMMAGLOBULINAEMIA
     Dosage: (9 G 1X/WEEK, INFUSED 45ML VIA 2-3 SITES OVER 1.5-2 HOURS SUBCUTANEOUS)
     Route: 058
     Dates: start: 20010613
  10. HIZENTRA [Suspect]
     Indication: HYPOGAMMAGLOBULINAEMIA
     Dosage: (9 G 1X/WEEK, INFUSED 45ML VIA 2-3 SITES OVER 1.5-2 HOURS SUBCUTANEOUS)
     Route: 058
     Dates: start: 20110321
  11. HIZENTRA [Suspect]
     Indication: HYPOGAMMAGLOBULINAEMIA
     Dosage: (9 G 1X/WEEK, INFUSED 45ML VIA 2-3 SITES OVER 1.5-2 HOURS SUBCUTANEOUS)
     Route: 058
     Dates: start: 20110315
  12. HIZENTRA [Suspect]
     Indication: HYPOGAMMAGLOBULINAEMIA
     Dosage: (9 G 1X/WEEK, INFUSED 45ML VIA 2-3 SITES OVER 1.5-2 HOURS SUBCUTANEOUS)
     Route: 058
     Dates: start: 20110815, end: 20110822
  13. HIZENTRA [Suspect]
     Indication: HYPOGAMMAGLOBULINAEMIA
     Dosage: (9 G 1X/WEEK, INFUSED 45ML VIA 2-3 SITES OVER 1.5-2 HOURS SUBCUTANEOUS)
     Route: 058
     Dates: start: 20110815, end: 20110822
  14. HIZENTRA [Suspect]
     Indication: HYPOGAMMAGLOBULINAEMIA
     Dosage: (9 G 1X/WEEK, INFUSED 45ML VIA 2-3 SITES OVER 1.5-2 HOURS SUBCUTANEOUS)
     Route: 058
     Dates: start: 20110613
  15. HIZENTRA [Suspect]
  16. CLARITIN [Concomitant]
  17. HIZENTRA [Suspect]
  18. XANAX [Concomitant]
  19. AMBIEN [Concomitant]
  20. HIZENTRA [Suspect]
  21. BYSTOLIC [Concomitant]
  22. NAPROXEN [Concomitant]

REACTIONS (10)
  - INFUSION SITE EXTRAVASATION [None]
  - EYE INFECTION [None]
  - INFUSION SITE SWELLING [None]
  - INFUSION SITE IRRITATION [None]
  - SINUSITIS [None]
  - HYPERTENSION [None]
  - INFUSION SITE ERYTHEMA [None]
  - HEADACHE [None]
  - MUSCLE SPASMS [None]
  - UPPER RESPIRATORY TRACT INFECTION [None]
